FAERS Safety Report 5745249-0 (Version None)
Quarter: 2008Q2

REPORT INFORMATION
  Report Type: 
  Country: None (occurrence: None)
  Receive Date: 20080521
  Receipt Date: 20080516
  Transmission Date: 20081010
  Serious: Yes (Hospitalization)
  Sender: FDA-Public Use
  Company Number: B0521294A

PATIENT
  Age: 59 Year
  Sex: Male

DRUGS (3)
  1. OMACOR [Suspect]
     Indication: DRUG USE FOR UNKNOWN INDICATION
     Dosage: 1000MG PER DAY
     Route: 048
     Dates: start: 20080101
  2. CORTISONE [Concomitant]
     Dates: start: 20080427
  3. CEPHALOSPORIN [Concomitant]
     Dates: start: 20080427

REACTIONS (2)
  - HYPERGLYCAEMIA [None]
  - METABOLIC ACIDOSIS [None]
